FAERS Safety Report 25523851 (Version 2)
Quarter: 2025Q3

REPORT INFORMATION
  Report Type: Spontaneous
  Country: EU (occurrence: EU)
  Receive Date: 20250707
  Receipt Date: 20250717
  Transmission Date: 20251021
  Serious: Yes (Hospitalization)
  Sender: ORGANON
  Company Number: None

PATIENT
  Age: 7 Year
  Sex: Female
  Weight: 18.4 kg

DRUGS (5)
  1. EBASTINE [Suspect]
     Active Substance: EBASTINE
     Indication: Hypersensitivity
     Dosage: 2.5 ML - 0 - 2.5 ML, ON MAY 18TH, 2025, THE MORNING DOSE WAS EXCEPTIONALLY ADMINISTERED AT NOON WITH
     Route: 048
     Dates: start: 2024, end: 20250522
  2. MEPHENOXALONE [Suspect]
     Active Substance: MEPHENOXALONE
     Indication: Neck pain
     Dosage: 100 MILLIGRAM, Q12H (1/2-0-1/2)
     Route: 048
     Dates: start: 20250516, end: 20250518
  3. MEPHENOXALONE [Suspect]
     Active Substance: MEPHENOXALONE
     Indication: Headache
  4. MEPHENOXALONE [Suspect]
     Active Substance: MEPHENOXALONE
     Indication: Musculoskeletal stiffness
  5. NUROFEN [IBUPROFEN LYSINATE] [Concomitant]
     Route: 048
     Dates: start: 202505, end: 202505

REACTIONS (8)
  - Gait disturbance [Recovered/Resolved]
  - Dysstasia [Recovered/Resolved]
  - Pain in extremity [Recovered/Resolved]
  - Dizziness [Unknown]
  - Balance disorder [Recovered/Resolved]
  - Muscular weakness [Recovered/Resolved]
  - Fall [Recovered/Resolved]
  - Paraesthesia [Unknown]

NARRATIVE: CASE EVENT DATE: 20250517
